FAERS Safety Report 7611151-2 (Version None)
Quarter: 2011Q3

REPORT INFORMATION
  Report Type: 
  Country: None (occurrence: None)
  Receive Date: 20110707
  Receipt Date: 20110624
  Transmission Date: 20111222
  Serious: Yes (Hospitalization)
  Sender: FDA-Public Use
  Company Number: 961279

PATIENT
  Age: 93 Year
  Sex: Female

DRUGS (1)
  1. FENTANYL CITRATE [Suspect]
     Indication: PRODUCT USED FOR UNKNOWN INDICATION
     Dates: end: 20110617

REACTIONS (3)
  - TOXICITY TO VARIOUS AGENTS [None]
  - CONVULSION [None]
  - MUSCULOSKELETAL DISORDER [None]
